FAERS Safety Report 8645546 (Version 6)
Quarter: 2019Q2

REPORT INFORMATION
  Report Type: Spontaneous
  Country: US (occurrence: US)
  Receive Date: 20120702
  Receipt Date: 20190510
  Transmission Date: 20190711
  Serious: Yes (Other)
  Sender: FDA-Public Use
  Company Number: US-PFIZER INC-2012156506

PATIENT
  Age: 53 Year
  Sex: Female
  Weight: 56.25 kg

DRUGS (2)
  1. PREMARIN [Concomitant]
     Active Substance: ESTROGENS, CONJUGATED
     Indication: HYSTERECTOMY
     Dosage: 0.9 MG, DAILY
     Route: 048
  2. ATROPINE SULFATE/DIPHENOXYLATE HYDROCHLORIDE [Suspect]
     Active Substance: ATROPINE SULFATE\DIPHENOXYLATE HYDROCHLORIDE
     Indication: DIARRHOEA
     Dosage: ATROPINE SULFATE: 25 MG/DIPHENOXYLATE HCL: 0.025 MG 3X/DAY

REACTIONS (8)
  - Asthenia [Unknown]
  - Nausea [Not Recovered/Not Resolved]
  - Cystitis radiation [Unknown]
  - Haemorrhage [Unknown]
  - Dizziness [Not Recovered/Not Resolved]
  - Drug ineffective [Not Recovered/Not Resolved]
  - Headache [Not Recovered/Not Resolved]
  - Rectal haemorrhage [Unknown]
